FAERS Safety Report 21059407 (Version 1)
Quarter: 2022Q3

REPORT INFORMATION
  Report Type: Spontaneous
  Country: BR (occurrence: BR)
  Receive Date: 20220708
  Receipt Date: 20220708
  Transmission Date: 20221027
  Serious: Yes (Other)
  Sender: FDA-Public Use
  Company Number: BR-BAXTER-2022BAX013348

PATIENT
  Sex: Female

DRUGS (3)
  1. SODIUM CHLORIDE [Suspect]
     Active Substance: SODIUM CHLORIDE
     Indication: Medication dilution
     Dosage: UNK (ROUTE : ENDOVENOUS ROUTE) ,2 AMPOULES DILUTED IN 250ML OF 0.9% SODIUM CHLORIDE
     Route: 042
     Dates: start: 20220504, end: 20220504
  2. IRON [Suspect]
     Active Substance: IRON
     Indication: Anaemia
     Dosage: UNK, 2 AMPOULES DILUTED IN 250ML OF 0.9% SODIUM CHLORIDEUNK (ROUTE : ENDOVENOUS)
     Route: 042
     Dates: start: 20220504, end: 20220504
  3. IRON [Suspect]
     Active Substance: IRON
     Indication: Mineral supplementation

REACTIONS (12)
  - Hyperhidrosis [Unknown]
  - Head discomfort [Recovered/Resolved]
  - Swelling [Unknown]
  - Pallor [Unknown]
  - Nausea [Recovered/Resolved]
  - Oedema peripheral [Unknown]
  - Dizziness [Recovered/Resolved]
  - Malaise [Recovered/Resolved]
  - Diarrhoea [Recovered/Resolved]
  - Paraesthesia [Unknown]
  - Headache [Recovered/Resolved]
  - Burning sensation [Unknown]
